FAERS Safety Report 4289683-7 (Version None)
Quarter: 2004Q1

REPORT INFORMATION
  Report Type: 
  Country: None (occurrence: None)
  Receive Date: 20040203
  Receipt Date: 20030528
  Transmission Date: 20041129
  Serious: Yes (Other)
  Sender: FDA-Public Use
  Company Number: 200318289BWH

PATIENT
  Age: 60 Year
  Sex: Female
  Weight: 79.8331 kg

DRUGS (8)
  1. AVELOX [Suspect]
     Indication: SINUSITIS
     Dosage: 400 MG, QD, ORAL
     Route: 048
     Dates: start: 20030521, end: 20030522
  2. AVELOX [Suspect]
     Indication: SINUSITIS
     Dosage: 400 MG, QD, ORAL
     Route: 048
     Dates: start: 20030526, end: 20030527
  3. DARVOCET-N 100 [Suspect]
     Indication: TOOTH LOSS
     Dosage: PRN, ORAL
     Route: 048
     Dates: start: 20030522
  4. AMOXICILLIN [Concomitant]
  5. LIPITOR [Concomitant]
  6. TRAZODONE HCL [Concomitant]
  7. DYAZIDE [Concomitant]
  8. PROPACET 100 [Concomitant]

REACTIONS (7)
  - ANXIETY [None]
  - ASTHENOPIA [None]
  - BLOOD PRESSURE INCREASED [None]
  - FLUSHING [None]
  - INSOMNIA [None]
  - NERVOUSNESS [None]
  - NIGHTMARE [None]
